FAERS Safety Report 19419024 (Version 3)
Quarter: 2025Q2

REPORT INFORMATION
  Report Type: Spontaneous
  Country: US (occurrence: US)
  Receive Date: 20210615
  Receipt Date: 20250624
  Transmission Date: 20250717
  Serious: Yes (Other)
  Sender: PFIZER
  Company Number: US-PFIZER INC-2021299595

PATIENT
  Age: 54 Year
  Sex: Female
  Weight: 58.97 kg

DRUGS (2)
  1. INLYTA [Suspect]
     Active Substance: AXITINIB
     Indication: Clear cell renal cell carcinoma
     Dosage: 6MG BY MOUTH TWICE A DAY
     Route: 048
     Dates: start: 201711, end: 2020
  2. INLYTA [Suspect]
     Active Substance: AXITINIB
     Dosage: 5MG 1 TABLET BY MOUTH IN THE MORNING AND 1 TABLET IN THE EVENING
     Route: 048
     Dates: start: 2020

REACTIONS (4)
  - Clear cell renal cell carcinoma [Unknown]
  - Malignant neoplasm progression [Unknown]
  - COVID-19 [Unknown]
  - Haemoglobin increased [Recovering/Resolving]

NARRATIVE: CASE EVENT DATE: 20200101
